FAERS Safety Report 14706342 (Version 1)
Quarter: 2018Q2

REPORT INFORMATION
  Report Type: Spontaneous
  Country: DE (occurrence: DE)
  Receive Date: 20180402
  Receipt Date: 20180402
  Transmission Date: 20180711
  Serious: Yes (Hospitalization)
  Sender: FDA-Public Use
  Company Number: DE-MYLANLABS-2018M1019429

PATIENT
  Sex: Female

DRUGS (2)
  1. SIMPONI [Suspect]
     Active Substance: GOLIMUMAB
     Indication: RHEUMATOID ARTHRITIS
     Route: 058
  2. METHOTREXATE. [Suspect]
     Active Substance: METHOTREXATE
     Indication: RHEUMATOID ARTHRITIS
     Dosage: DOSAGE FORM: UNSPECIFIED, 5 UNITS UNSPECIFIED
     Route: 065

REACTIONS (2)
  - Diverticular perforation [Recovered/Resolved]
  - Colonic abscess [Recovered/Resolved]

NARRATIVE: CASE EVENT DATE: 20170808
